FAERS Safety Report 10032243 (Version 1)
Quarter: 2014Q1

REPORT INFORMATION
  Report Type: Spontaneous
  Country: US (occurrence: US)
  Receive Date: 20140324
  Receipt Date: 20140324
  Transmission Date: 20141002
  Serious: Yes (Other)
  Sender: FDA-Public Use
  Company Number: US-ELI_LILLY_AND_COMPANY-US201403005083

PATIENT
  Sex: Female

DRUGS (11)
  1. HUMALOG LISPRO [Suspect]
     Indication: TYPE 1 DIABETES MELLITUS
     Dosage: UNK, PRN
     Route: 065
     Dates: start: 1994
  2. HUMALOG LISPRO [Suspect]
     Dosage: UNK, PRN
     Route: 065
  3. LEVEMIR [Concomitant]
     Dosage: 5 U, QD
  4. HEPARIN [Concomitant]
     Dosage: UNK, 3/W
  5. BYSTOLIC [Concomitant]
  6. DOXAZOSIN [Concomitant]
  7. AMLODIPINE [Concomitant]
  8. ASPIRIN [Concomitant]
     Dosage: 325 MG, UNKNOWN
  9. PRAVASTATIN [Concomitant]
  10. PLAVIX [Concomitant]
     Dosage: UNK
  11. RENVELA [Concomitant]

REACTIONS (5)
  - Myocardial infarction [Unknown]
  - Cerebrovascular accident [Unknown]
  - Renal failure [Unknown]
  - Visual acuity reduced [Unknown]
  - Underdose [Unknown]
